FAERS Safety Report 14266883 (Version 1)
Quarter: 2017Q4

REPORT INFORMATION
  Report Type: Spontaneous
  Country: AR (occurrence: AR)
  Receive Date: 20171211
  Receipt Date: 20171211
  Transmission Date: 20180321
  Serious: Yes (Other)
  Sender: FDA-Public Use
  Company Number: AR-UNICHEM PHARMACEUTICALS (USA) INC-UCM201712-000300

PATIENT

DRUGS (2)
  1. BISOPROLOL FUMARATE. [Suspect]
     Active Substance: BISOPROLOL FUMARATE
  2. PROPAFENONE. [Suspect]
     Active Substance: PROPAFENONE

REACTIONS (1)
  - Ventricular asystole [Unknown]
